FAERS Safety Report 4434977-5 (Version None)
Quarter: 2004Q3

REPORT INFORMATION
  Report Type: 
  Country: None (occurrence: None)
  Receive Date: 20040726
  Receipt Date: 20040527
  Transmission Date: 20050211
  Serious: No
  Sender: FDA-Public Use
  Company Number: USA040567960

PATIENT
  Age: 75 Year
  Sex: Female

DRUGS (1)
  1. FORTEO [Suspect]
     Dates: start: 20040415, end: 20040514

REACTIONS (5)
  - ERYTHEMA [None]
  - EYE SWELLING [None]
  - HEADACHE [None]
  - INSOMNIA [None]
  - SINUS DISORDER [None]
